FAERS Safety Report 5420964-7 (Version None)
Quarter: 2007Q3

REPORT INFORMATION
  Report Type: 
  Country: None (occurrence: None)
  Receive Date: 20070817
  Receipt Date: 20070807
  Transmission Date: 20080115
  Serious: Yes (Disabling)
  Sender: FDA-Public Use
  Company Number: SP01278

PATIENT
  Age: 71 Year
  Sex: Female
  Weight: 53.978 kg

DRUGS (10)
  1. COLAZAL [Suspect]
     Indication: COLITIS MICROSCOPIC
     Dosage: 2250 MG (750 MG, 3 IN 1 D), ORAL,  750 MG (750 MG, 1 IN 1 D), ORAL
     Route: 048
     Dates: start: 20070501, end: 20070501
  2. COLAZAL [Suspect]
     Indication: COLITIS MICROSCOPIC
     Dosage: 2250 MG (750 MG, 3 IN 1 D), ORAL,  750 MG (750 MG, 1 IN 1 D), ORAL
     Route: 048
     Dates: start: 20070501
  3. PROPACET 100 [Concomitant]
  4. LOVASTATIN [Concomitant]
  5. LEVOTHYROXINE SODIUM [Concomitant]
  6. FOSAMAX [Concomitant]
  7. CHOLESTYRAMINE [Concomitant]
  8. AMITRIPTYLINE HCL [Concomitant]
  9. PRILOSEC [Concomitant]
  10. SEPTRA [Concomitant]

REACTIONS (3)
  - ARTHRALGIA [None]
  - GAIT DISTURBANCE [None]
  - MUSCULOSKELETAL STIFFNESS [None]
